FAERS Safety Report 8125136-3 (Version None)
Quarter: 2012Q1

REPORT INFORMATION
  Report Type: 
  Country: None (occurrence: None)
  Receive Date: 20120209
  Receipt Date: 20120126
  Transmission Date: 20120608
  Serious: No
  Sender: FDA-Public Use
  Company Number: JP-ROCHE-1037898

PATIENT
  Age: 1 Year
  Sex: Male
  Weight: 9.3 kg

DRUGS (4)
  1. ALIMEZINE [Concomitant]
     Dosage: DOSAGE IS UNCERTAIN.
     Route: 048
  2. ASVERIN [Concomitant]
     Dosage: DOSAGE IS UNCERTAIN.
     Route: 048
  3. METHISTA [Concomitant]
     Dosage: DOSAGE IS UNCERTAIN.
     Route: 048
  4. TAMIFLU [Suspect]
     Indication: PRODUCT USED FOR UNKNOWN INDICATION
     Dosage: DRY SYRUP 3%, DOSE RECEIVED- 1 GRAM
     Route: 048
     Dates: start: 20120126

REACTIONS (2)
  - NO ADVERSE EVENT [None]
  - DRUG ADMINISTRATION ERROR [None]
